FAERS Safety Report 8611902-4 (Version None)
Quarter: 2012Q3

REPORT INFORMATION
  Report Type: 
  Country: None (occurrence: None)
  Receive Date: 20120822
  Receipt Date: 20120814
  Transmission Date: 20120928
  Serious: Yes (Other)
  Sender: FDA-Public Use
  Company Number: PHHY2012US070898

PATIENT
  Sex: Male

DRUGS (6)
  1. CALCIUM [Suspect]
  2. LEVOTHYROXINE SODIUM [Suspect]
     Dosage: 50 UG MATERNAL DOSE
  3. FISH OIL [Suspect]
  4. MULTI-VITAMINS [Suspect]
  5. BUPROPION HCL [Suspect]
     Dosage: 300 MG, MATERNAL DOSE
  6. LITHIUM CARBONATE [Suspect]
     Dosage: 900 MG, UNK

REACTIONS (5)
  - FOETAL EXPOSURE DURING PREGNANCY [None]
  - HYPOTONIA NEONATAL [None]
  - WEIGHT DECREASE NEONATAL [None]
  - DRUG WITHDRAWAL SYNDROME NEONATAL [None]
  - FEEDING DISORDER NEONATAL [None]
